FAERS Safety Report 9062344 (Version 1)
Quarter: 2013Q1

REPORT INFORMATION
  Report Type: Spontaneous
  Country: BR (occurrence: BR)
  Receive Date: 20130129
  Receipt Date: 20130129
  Transmission Date: 20140127
  Serious: Yes (Other)
  Sender: FDA-Public Use
  Company Number: PHHY2013BR008066

PATIENT
  Sex: Male
  Weight: 71 kg

DRUGS (3)
  1. DIOVAN HCT [Suspect]
     Indication: HYPERTENSION
     Dosage: 1 DF(160/12.5 MG), DAILY
  2. DIOVAN [Suspect]
     Indication: HYPERTENSION
     Dosage: 1 DF(160 MG), DAILY
  3. SOMALGIN [Concomitant]
     Indication: ANTICOAGULANT THERAPY
     Dosage: 1 DF(100 MG), DAILY

REACTIONS (4)
  - Coronary artery occlusion [Not Recovered/Not Resolved]
  - Chest pain [Recovered/Resolved]
  - Heart rate increased [Unknown]
  - Hypertension [Unknown]
